FAERS Safety Report 6832238-8 (Version None)
Quarter: 2010Q3

REPORT INFORMATION
  Report Type: 
  Country: None (occurrence: None)
  Receive Date: 20100712
  Receipt Date: 20100630
  Transmission Date: 20110219
  Serious: Yes (Hospitalization)
  Sender: FDA-Public Use
  Company Number: DE-JNJFOC-20100308161

PATIENT
  Sex: Male
  Weight: 103 kg

DRUGS (14)
  1. BLINDED; GOLIMUMA [Suspect]
     Route: 058
  2. BLINDED; GOLIMUMA [Suspect]
     Indication: COLITIS ULCERATIVE
     Route: 058
  3. PLACEBO [Suspect]
     Indication: COLITIS ULCERATIVE
     Route: 058
  4. BISOPROLOL [Concomitant]
     Route: 048
  5. ENABETA [Concomitant]
     Route: 048
  6. SIMVAHEXAL [Concomitant]
     Route: 048
  7. ASPIRIN [Concomitant]
     Route: 048
  8. PREDNISOLONE [Concomitant]
     Indication: COLITIS ULCERATIVE
     Route: 048
  9. PENTASA [Concomitant]
     Indication: COLITIS ULCERATIVE
     Route: 048
  10. IDEOS [Concomitant]
     Route: 048
  11. METAMIZOL [Concomitant]
     Route: 048
  12. ACTRAPHANE [Concomitant]
     Route: 058
  13. PANTOZOL [Concomitant]
     Route: 048
  14. TRAMAL [Concomitant]

REACTIONS (3)
  - COLITIS [None]
  - MYOCARDIAL INFARCTION [None]
  - SEPSIS [None]
